FAERS Safety Report 18095740 (Version 1)
Quarter: 2020Q3

REPORT INFORMATION
  Report Type: Spontaneous
  Country: US (occurrence: US)
  Receive Date: 20200730
  Receipt Date: 20200730
  Transmission Date: 20201103
  Serious: Yes (Other)
  Sender: FDA-Public Use
  Company Number: US-BAYER-2020-149321

PATIENT
  Age: 67 Year
  Sex: Female
  Weight: 55.33 kg

DRUGS (14)
  1. HUMIRA [Concomitant]
     Active Substance: ADALIMUMAB
     Dosage: 40 MG
     Route: 058
     Dates: start: 2016, end: 20200515
  2. ZOCOR [Concomitant]
     Active Substance: SIMVASTATIN
  3. ALPRAZOLAM. [Concomitant]
     Active Substance: ALPRAZOLAM
  4. VITAMIN D [VITAMIN D NOS] [Concomitant]
     Active Substance: VITAMIN D NOS
  5. METOPROLOL. [Concomitant]
     Active Substance: METOPROLOL
  6. CALCIUM [Concomitant]
     Active Substance: CALCIUM
  7. CARISOPRODOL. [Concomitant]
     Active Substance: CARISOPRODOL
  8. ZOLPIDEM [Concomitant]
     Active Substance: ZOLPIDEM TARTRATE
  9. ALEVE [Suspect]
     Active Substance: NAPROXEN SODIUM
  10. LOSARTAN. [Concomitant]
     Active Substance: LOSARTAN
  11. DULOXETINE. [Concomitant]
     Active Substance: DULOXETINE
  12. LEVOTHYROXINE. [Concomitant]
     Active Substance: LEVOTHYROXINE
  13. NORCO [Concomitant]
     Active Substance: ACETAMINOPHEN\HYDROCODONE BITARTRATE
  14. ZYRTEC [Concomitant]
     Active Substance: CETIRIZINE HYDROCHLORIDE

REACTIONS (13)
  - Exostosis [Recovered/Resolved]
  - Inflammation [Not Recovered/Not Resolved]
  - Peripheral swelling [Recovered/Resolved]
  - Fatigue [Not Recovered/Not Resolved]
  - Diarrhoea [None]
  - Rotator cuff syndrome [Recovered/Resolved]
  - Pain in extremity [Recovered/Resolved]
  - Malaise [Not Recovered/Not Resolved]
  - Peripheral swelling [Not Recovered/Not Resolved]
  - Colitis microscopic [Recovered/Resolved]
  - Radiculopathy [Recovered/Resolved]
  - Musculoskeletal stiffness [Not Recovered/Not Resolved]
  - Pain in extremity [Not Recovered/Not Resolved]

NARRATIVE: CASE EVENT DATE: 2018
